FAERS Safety Report 15305685 (Version 1)
Quarter: 2018Q3

REPORT INFORMATION
  Report Type: Spontaneous
  Country: US (occurrence: US)
  Receive Date: 20180810
  Receipt Date: 20180810
  Transmission Date: 20181010
  Serious: Yes (Hospitalization)
  Sender: FDA-Public Use
  Company Number: None

PATIENT
  Age: 20 Year
  Sex: Male

DRUGS (1)
  1. OLD SPICE AP?DO + BODY SPRAY [Suspect]
     Active Substance: ALUMINUM ZIRCONIUM TRICHLOROHYDREX GLY
     Route: 061
     Dates: start: 201807, end: 20180719

REACTIONS (8)
  - Application site burn [None]
  - Chemical burn of skin [None]
  - Application site erythema [None]
  - Application site reaction [None]
  - Skin lesion [None]
  - Infection [None]
  - Application site pain [None]
  - Application site rash [None]
